FAERS Safety Report 12229077 (Version 1)
Quarter: 2016Q1

REPORT INFORMATION
  Report Type: Spontaneous
  Country: US (occurrence: None)
  Receive Date: 20160331
  Receipt Date: 20160331
  Transmission Date: 20160526
  Serious: Yes (Disabling, Other)
  Sender: FDA-Public Use
  Company Number: None

PATIENT
  Age: 43 Year
  Sex: Male
  Weight: 133.81 kg

DRUGS (8)
  1. VICKS DAYQUIL [Concomitant]
     Active Substance: DEXTROMETHORPHAN HYDROBROMIDE\GUAIFENESIN
  2. MUCINEX [Concomitant]
     Active Substance: GUAIFENESIN
  3. LEVOFLOXACIN 500 MG DR REDDS LAB [Suspect]
     Active Substance: LEVOFLOXACIN
     Indication: SINUSITIS
     Dosage: 7 TABLET(S) ONCE A DAY
     Route: 048
     Dates: start: 20160324, end: 20160327
  4. ATORVASTATIN [Concomitant]
     Active Substance: ATORVASTATIN
  5. AZELASTINE [Concomitant]
     Active Substance: AZELASTINE
  6. TRANSDERM SCOP [Concomitant]
     Active Substance: SCOPOLAMINE
  7. FEXOFENADINE [Concomitant]
     Active Substance: FEXOFENADINE\FEXOFENADINE HYDROCHLORIDE
  8. LOSARTAN-HYDROCHLOROTHIAZIDE [Concomitant]
     Active Substance: HYDROCHLOROTHIAZIDE\LOSARTAN

REACTIONS (19)
  - Abdominal pain upper [None]
  - Tinnitus [None]
  - Sciatica [None]
  - Headache [None]
  - Nervous system disorder [None]
  - Visual impairment [None]
  - Paraesthesia [None]
  - Hypoaesthesia [None]
  - Pain [None]
  - Vision blurred [None]
  - Nausea [None]
  - Vomiting [None]
  - Pain in extremity [None]
  - Wheezing [None]
  - Diarrhoea [None]
  - Gastrooesophageal reflux disease [None]
  - Back pain [None]
  - Crying [None]
  - Impaired work ability [None]

NARRATIVE: CASE EVENT DATE: 20160326
